FAERS Safety Report 14815328 (Version 1)
Quarter: 2018Q2

REPORT INFORMATION
  Report Type: Spontaneous
  Country: TW (occurrence: TW)
  Receive Date: 20180426
  Receipt Date: 20180426
  Transmission Date: 20180711
  Serious: Yes (Death, Other)
  Sender: FDA-Public Use
  Company Number: TW-009507513-1801TWN005699

PATIENT
  Age: 49 Year
  Sex: Female
  Weight: 66.8 kg

DRUGS (2)
  1. PEMBROLIZUMAB. [Suspect]
     Active Substance: PEMBROLIZUMAB
     Indication: SQUAMOUS CELL CARCINOMA OF HEAD AND NECK
     Dosage: 100 MG, EVERY 3 WEEKS
     Route: 042
     Dates: start: 20160826, end: 20170303
  2. PEMBROLIZUMAB. [Suspect]
     Active Substance: PEMBROLIZUMAB
     Indication: NEOPLASM MALIGNANT

REACTIONS (6)
  - Pneumonitis [Not Recovered/Not Resolved]
  - Pruritus generalised [Recovered/Resolved]
  - Rash maculo-papular [Recovered/Resolved]
  - Pneumonia [Not Recovered/Not Resolved]
  - Type I hypersensitivity [Not Recovered/Not Resolved]
  - Disease progression [Fatal]

NARRATIVE: CASE EVENT DATE: 2016
